FAERS Safety Report 6369972-2 (Version None)
Quarter: 2009Q3

REPORT INFORMATION
  Report Type: 
  Country: None (occurrence: None)
  Receive Date: 20090923
  Receipt Date: 20080204
  Transmission Date: 20100115
  Serious: Yes (Hospitalization, Other)
  Sender: FDA-Public Use
  Company Number: US-ASTRAZENECA-2006UW07583

PATIENT
  Age: 28 Year
  Sex: Male
  Weight: 174.6 kg

DRUGS (28)
  1. SEROQUEL [Suspect]
     Indication: BIPOLAR DISORDER
     Dosage: 50 - 1000 MG
     Route: 048
     Dates: start: 19990110
  2. SEROQUEL [Suspect]
     Indication: INSOMNIA
     Dosage: 50 - 1000 MG
     Route: 048
     Dates: start: 19990110
  3. SEROQUEL [Suspect]
     Indication: MANIA
     Dosage: 50 - 1000 MG
     Route: 048
     Dates: start: 19990110
  4. SEROQUEL [Suspect]
     Route: 048
     Dates: start: 19990101
  5. SEROQUEL [Suspect]
     Route: 048
     Dates: start: 19990101
  6. SEROQUEL [Suspect]
     Route: 048
     Dates: start: 19990101
  7. ZYPREXA [Suspect]
     Indication: BIPOLAR DISORDER
     Dosage: 10 MG TO 15 MG
     Dates: start: 19990401, end: 20030201
  8. ZYPREXA [Suspect]
     Indication: AFFECTIVE DISORDER
     Dosage: 10 MG TO 15 MG
     Dates: start: 19990401, end: 20030201
  9. ZYPREXA [Suspect]
     Route: 048
     Dates: start: 19990409, end: 19990101
  10. ZYPREXA [Suspect]
     Route: 048
     Dates: start: 19990409, end: 19990101
  11. ZYPREXA [Suspect]
     Dosage: 7.5 - 15 MG, AT NIGHT
     Route: 048
     Dates: start: 20001020, end: 20030218
  12. ZYPREXA [Suspect]
     Dosage: 7.5 - 15 MG, AT NIGHT
     Route: 048
     Dates: start: 20001020, end: 20030218
  13. LIPITOR [Concomitant]
     Indication: HYPERCHOLESTEROLAEMIA
  14. LITHIUM CARBONATE [Concomitant]
     Indication: BIPOLAR I DISORDER
     Dosage: 300 - 1200 MG
     Route: 048
     Dates: start: 19950201
  15. GLUCOTROL [Concomitant]
     Route: 048
     Dates: start: 20050126
  16. DEPAKOTE [Concomitant]
     Indication: MANIA
     Dosage: 500 MG TWICE A DAY, 1000 MG THREE TIMES A DAY
     Route: 048
     Dates: start: 19981112
  17. DEPAKOTE [Concomitant]
     Indication: AFFECTIVE DISORDER
     Dosage: 500 MG TWICE A DAY, 1000 MG THREE TIMES A DAY
     Route: 048
     Dates: start: 19981112
  18. DEPAKOTE [Concomitant]
     Indication: IRRITABILITY
     Dosage: 500 MG TWICE A DAY, 1000 MG THREE TIMES A DAY
     Route: 048
     Dates: start: 19981112
  19. ATIVAN [Concomitant]
     Indication: AGITATION
     Dates: start: 19970128
  20. ATIVAN [Concomitant]
     Indication: ABNORMAL BEHAVIOUR
     Dates: start: 19970128
  21. HALDOL [Concomitant]
     Indication: BIPOLAR I DISORDER
     Dosage: 5 - 10 MG
     Dates: start: 19950201
  22. HALDOL [Concomitant]
     Indication: AGITATION
     Dosage: 5 - 10 MG
     Dates: start: 19950201
  23. HALDOL [Concomitant]
     Indication: ANGER
     Dosage: 5 - 10 MG
     Dates: start: 19950201
  24. COGENTIN [Concomitant]
     Indication: BIPOLAR I DISORDER
     Dates: start: 19950201
  25. COGENTIN [Concomitant]
     Indication: AGITATION
     Dates: start: 19950201
  26. COGENTIN [Concomitant]
     Indication: ANGER
     Dates: start: 19950201
  27. HUMALOG [Concomitant]
     Dosage: 75 / 25, 30 - 50 UNITS
     Route: 058
     Dates: start: 20030903
  28. LISINOPRIL [Concomitant]
     Indication: HYPERTENSION
     Route: 048

REACTIONS (4)
  - DIABETES MELLITUS [None]
  - DIABETES MELLITUS INADEQUATE CONTROL [None]
  - DIABETIC KETOACIDOSIS [None]
  - TYPE 2 DIABETES MELLITUS [None]
